FAERS Safety Report 14534296 (Version 1)
Quarter: 2018Q1

REPORT INFORMATION
  Report Type: Report from Study
  Country: BE (occurrence: BE)
  Receive Date: 20180215
  Receipt Date: 20180215
  Transmission Date: 20180509
  Serious: Yes (Hospitalization)
  Sender: FDA-Public Use
  Company Number: PHHO2017BE015992

PATIENT
  Age: 65 Year
  Sex: Female
  Weight: 42 kg

DRUGS (2)
  1. LEE011 [Suspect]
     Active Substance: RIBOCICLIB
     Indication: BREAST CANCER
     Dosage: 600 MG, QD
     Route: 048
     Dates: start: 20171026
  2. LETROZOLE. [Suspect]
     Active Substance: LETROZOLE
     Indication: BREAST CANCER
     Dosage: 2.5 MG, QD
     Route: 048
     Dates: start: 20171027

REACTIONS (1)
  - Infective exacerbation of chronic obstructive airways disease [Not Recovered/Not Resolved]

NARRATIVE: CASE EVENT DATE: 20171110
